FAERS Safety Report 8369850-3 (Version None)
Quarter: 2012Q2

REPORT INFORMATION
  Report Type: 
  Country: None (occurrence: None)
  Receive Date: 20120518
  Receipt Date: 20120515
  Transmission Date: 20120825
  Serious: Yes (Death, Other)
  Sender: FDA-Public Use
  Company Number: VE-PFIZER INC-2012115221

PATIENT
  Age: 75 Year
  Sex: Male

DRUGS (3)
  1. ATIVAN [Concomitant]
     Indication: SCHIZOPHRENIA
     Dosage: 2 MG, 1X/DAY
     Route: 048
  2. LIPITOR [Suspect]
     Indication: HYPERCHOLESTEROLAEMIA
     Dosage: 40 MG, 1X/DAY
     Route: 048
  3. PLAVIX [Concomitant]
     Indication: CARDIAC FAILURE
     Dosage: 75 MG, 1X/DAY
     Route: 048

REACTIONS (1)
  - MYOCARDIAL INFARCTION [None]
